FAERS Safety Report 6964944-9 (Version None)
Quarter: 2010Q3

REPORT INFORMATION
  Report Type: 
  Country: None (occurrence: None)
  Receive Date: 20100903
  Receipt Date: 20100827
  Transmission Date: 20110219
  Serious: Yes (Death, Hospitalization, Other)
  Sender: FDA-Public Use
  Company Number: US-ELI_LILLY_AND_COMPANY-US201008008362

PATIENT
  Age: 37 Year
  Sex: Female

DRUGS (1)
  1. HUMULIN L [Suspect]
     Indication: TYPE 1 DIABETES MELLITUS

REACTIONS (8)
  - BLINDNESS [None]
  - DIABETES MELLITUS INADEQUATE CONTROL [None]
  - DIABETIC COMPLICATION [None]
  - DRUG INEFFECTIVE [None]
  - FRACTURE [None]
  - IMPAIRED HEALING [None]
  - INTESTINAL FUNCTIONAL DISORDER [None]
  - RENAL FAILURE [None]
